FAERS Safety Report 7367214-2 (Version None)
Quarter: 2011Q1

REPORT INFORMATION
  Report Type: 
  Country: None (occurrence: None)
  Receive Date: 20110310
  Receipt Date: 20110304
  Transmission Date: 20110831
  Serious: Yes (Other)
  Sender: FDA-Public Use
  Company Number: GER/UKI/11/0017658

PATIENT
  Age: 73 Year
  Sex: Female

DRUGS (6)
  1. BISOPROLOL(BISOPROLOL) [Concomitant]
  2. OLMESARTAN MEDOXOMIL [Concomitant]
  3. BENDROFLUMETHIAZIDE(BENDROFLUMETHIAZIDE) [Concomitant]
  4. WARFARIN SODIUM(WARARIN SODIUM) [Concomitant]
  5. AMLODIPINE [Suspect]
     Indication: HYPERTENSION
     Dosage: 5 MG, 1 IN 1 D, ORAL
     Route: 048
     Dates: start: 20081220, end: 20110223
  6. SIMVASTATIN [Concomitant]

REACTIONS (3)
  - PURPURA [None]
  - OEDEMA PERIPHERAL [None]
  - SKIN REACTION [None]
